FAERS Safety Report 17203379 (Version 2)
Quarter: 2021Q2

REPORT INFORMATION
  Report Type: Spontaneous
  Country: HR (occurrence: HR)
  Receive Date: 20191226
  Receipt Date: 20210406
  Transmission Date: 20210716
  Serious: No
  Sender: FDA-Public Use
  Company Number: NVSC2019HR032361

PATIENT
  Sex: Male

DRUGS (5)
  1. TRILEPTAL [Suspect]
     Active Substance: OXCARBAZEPINE
     Dosage: 900 MG (300 MG IN MORNING AND 600 MG IN THE EVENING)
     Route: 065
     Dates: start: 201802
  2. DEPAKINE [Concomitant]
     Active Substance: VALPROATE SODIUM
     Indication: EPILEPSY
     Dosage: UNK
     Route: 065
     Dates: start: 201012
  3. TRILEPTAL [Suspect]
     Active Substance: OXCARBAZEPINE
     Indication: EPILEPSY
     Dosage: UNK
     Route: 065
     Dates: start: 201012, end: 2014
  4. KEPPRA [Concomitant]
     Active Substance: LEVETIRACETAM
     Indication: EPILEPSY
     Dosage: UNK
     Route: 065
     Dates: start: 201012
  5. DEPAKINE [Concomitant]
     Active Substance: VALPROATE SODIUM
     Dosage: UNK
     Route: 065
     Dates: start: 201802, end: 201809

REACTIONS (3)
  - Iron binding capacity total decreased [Unknown]
  - Blood iron abnormal [Unknown]
  - Blood iron increased [Unknown]
